FAERS Safety Report 5204144-6 (Version None)
Quarter: 2007Q1

REPORT INFORMATION
  Report Type: 
  Country: None (occurrence: None)
  Receive Date: 20070110
  Receipt Date: 20051215
  Transmission Date: 20070707
  Serious: No
  Sender: FDA-Public Use
  Company Number: US-BRISTOL-MYERS SQUIBB COMPANY-13218003

PATIENT
  Age: 36 Year
  Sex: Male

DRUGS (6)
  1. ABILIFY [Suspect]
     Indication: SCHIZOPHRENIA
     Route: 048
  2. COLACE [Concomitant]
  3. ASCORBIC ACID [Concomitant]
  4. LEVOXYL [Concomitant]
  5. METFORMIN HCL [Concomitant]
  6. GEMFIBROZIL [Concomitant]

REACTIONS (3)
  - CONTUSION [None]
  - DRY SKIN [None]
  - HYPERHIDROSIS [None]
